FAERS Safety Report 12948590 (Version 2)
Quarter: 2016Q4

REPORT INFORMATION
  Report Type: Spontaneous
  Country: LV (occurrence: LV)
  Receive Date: 20161116
  Receipt Date: 20161128
  Transmission Date: 20170207
  Serious: Yes (Hospitalization, Other)
  Sender: FDA-Public Use
  Company Number: LV-KADMON PHARMACEUTICALS, LLC-KAD201611-004012

PATIENT
  Age: 60 Year
  Sex: Female

DRUGS (13)
  1. PREDNISOLONE. [Concomitant]
     Active Substance: PREDNISOLONE
     Route: 048
     Dates: start: 201605
  2. EXVIERA [Suspect]
     Active Substance: DASABUVIR
     Indication: CHRONIC HEPATITIS C
     Dosage: TABLET
     Route: 048
     Dates: start: 20160426, end: 20160712
  3. GABAPENTIN. [Concomitant]
     Active Substance: GABAPENTIN
     Dates: start: 201605
  4. AMITRIPTYLINE [Concomitant]
     Active Substance: AMITRIPTYLINE
     Dates: start: 201605
  5. MELDONIUM [Concomitant]
     Active Substance: MELDONIUM
     Dates: start: 201512
  6. LACTULOSE. [Concomitant]
     Active Substance: LACTULOSE
     Dates: start: 201601
  7. RIBAVIRIN. [Suspect]
     Active Substance: RIBAVIRIN
     Indication: CHRONIC HEPATITIS C
     Dosage: TABLET
     Route: 048
     Dates: start: 20150909, end: 20151124
  8. METHYLPREDNISOLONE. [Concomitant]
     Active Substance: METHYLPREDNISOLONE
     Dates: start: 201512
  9. PEGINF [Concomitant]
     Dates: start: 20150909, end: 20151124
  10. VIEKIRAX [Suspect]
     Active Substance: OMBITASVIR\PARITAPREVIR\RITONAVIR
     Indication: CHRONIC HEPATITIS C
     Dosage: TABLET
     Route: 048
     Dates: start: 20160426, end: 20160712
  11. AZATHIOPRINE. [Concomitant]
     Active Substance: AZATHIOPRINE
     Dates: start: 201605
  12. NIMESULIDE [Concomitant]
     Active Substance: NIMESULIDE
     Dates: start: 201512
  13. IPIDACRINE [Concomitant]
     Active Substance: IPIDACRINE
     Dates: start: 201512

REACTIONS (23)
  - Limb injury [Unknown]
  - Chronic hepatitis C [Unknown]
  - Decreased appetite [Not Recovered/Not Resolved]
  - Pain [Unknown]
  - Drug-induced liver injury [Unknown]
  - Hepatomegaly [Unknown]
  - Drug ineffective [Unknown]
  - Nausea [Unknown]
  - Pain [Unknown]
  - Vasculitis [Unknown]
  - Polyneuropathy [Unknown]
  - Jaundice [Unknown]
  - Petechiae [Unknown]
  - Hepatic encephalopathy [Unknown]
  - Hospitalisation [Recovered/Resolved]
  - Cryoglobulinaemia [Unknown]
  - Asthenia [Unknown]
  - Pyrexia [Unknown]
  - Vomiting [Unknown]
  - Diarrhoea [Unknown]
  - Polyneuropathy [Unknown]
  - Petechiae [Unknown]
  - Neutropenia [Unknown]

NARRATIVE: CASE EVENT DATE: 2015
